FAERS Safety Report 10877674 (Version 1)
Quarter: 2015Q1

REPORT INFORMATION
  Report Type: Spontaneous
  Country: US (occurrence: US)
  Receive Date: 20150302
  Receipt Date: 20150302
  Transmission Date: 20150721
  Serious: Yes (Other)
  Sender: FDA-Public Use
  Company Number: US-TEVA-543786USA

PATIENT
  Age: 30 Year
  Sex: Female

DRUGS (1)
  1. LEVOFLOXACIN TABLETS, 250 MG, 500 MG AND 750 MG [Suspect]
     Active Substance: LEVOFLOXACIN
     Route: 065

REACTIONS (2)
  - Vanishing bile duct syndrome [Recovered/Resolved]
  - Stevens-Johnson syndrome [Unknown]
